FAERS Safety Report 14735620 (Version 3)
Quarter: 2025Q1

REPORT INFORMATION
  Report Type: Spontaneous
  Country: US (occurrence: US)
  Receive Date: 20180409
  Receipt Date: 20250218
  Transmission Date: 20250408
  Serious: Yes (Hospitalization, Other)
  Sender: ROCHE
  Company Number: US-ROCHE-2097489

PATIENT
  Age: 67 Year
  Sex: Male

DRUGS (16)
  1. AVASTIN [Suspect]
     Active Substance: BEVACIZUMAB
     Indication: Rectal cancer
     Route: 040
     Dates: start: 20170912
  2. AVASTIN [Suspect]
     Active Substance: BEVACIZUMAB
     Route: 040
     Dates: start: 2010
  3. AVASTIN [Suspect]
     Active Substance: BEVACIZUMAB
     Route: 040
     Dates: start: 20141215
  4. XELODA [Suspect]
     Active Substance: CAPECITABINE
     Indication: Rectal cancer
     Route: 048
  5. OXALIPLATIN [Suspect]
     Active Substance: OXALIPLATIN
     Indication: Rectal cancer
     Route: 040
     Dates: start: 20170912
  6. OXALIPLATIN [Suspect]
     Active Substance: OXALIPLATIN
     Route: 040
     Dates: start: 20171024
  7. OXALIPLATIN [Suspect]
     Active Substance: OXALIPLATIN
     Route: 040
     Dates: start: 20171107
  8. OXALIPLATIN [Suspect]
     Active Substance: OXALIPLATIN
     Route: 040
     Dates: start: 2010
  9. LEUCOVORIN [Concomitant]
     Active Substance: LEUCOVORIN\LEUCOVORIN CALCIUM
     Indication: Rectal cancer
     Dates: start: 20170912
  10. LEUCOVORIN [Concomitant]
     Active Substance: LEUCOVORIN\LEUCOVORIN CALCIUM
     Dates: start: 2010
  11. FLUOROURACIL [Concomitant]
     Active Substance: FLUOROURACIL
     Indication: Rectal cancer
     Dates: start: 20170912
  12. FLUOROURACIL [Concomitant]
     Active Substance: FLUOROURACIL
     Dates: start: 2010
  13. FLUOROURACIL [Concomitant]
     Active Substance: FLUOROURACIL
     Dates: start: 20141215
  14. IRINOTECAN [Concomitant]
     Active Substance: IRINOTECAN
     Indication: Rectal cancer
     Dates: start: 20160324
  15. IRINOTECAN [Concomitant]
     Active Substance: IRINOTECAN
     Dates: start: 20141215
  16. GABAPENTIN [Concomitant]
     Active Substance: GABAPENTIN

REACTIONS (10)
  - Post procedural discharge [Recovered/Resolved]
  - Abdominal mass [Unknown]
  - Pain [Unknown]
  - Pneumonia [Unknown]
  - Constipation [Unknown]
  - Acidosis hyperchloraemic [Unknown]
  - Acute kidney injury [Unknown]
  - Diarrhoea [Unknown]
  - Adverse drug reaction [Unknown]
  - Fistula [Recovered/Resolved]

NARRATIVE: CASE EVENT DATE: 20160525
